FAERS Safety Report 5376535-4 (Version None)
Quarter: 2007Q3

REPORT INFORMATION
  Report Type: 
  Country: None (occurrence: None)
  Receive Date: 20070702
  Receipt Date: 20070618
  Transmission Date: 20080115
  Serious: Yes (Death)
  Sender: FDA-Public Use
  Company Number: RU-SHR-RU-2007-021653

PATIENT
  Age: 34 Year
  Sex: Female
  Weight: 52 kg

DRUGS (2)
  1. BETASERON [Suspect]
     Indication: MULTIPLE SCLEROSIS
     Dosage: 80000 IU, EVERY 2D
     Route: 058
     Dates: start: 20060826, end: 20070510
  2. HERBAL PREPARATION [Concomitant]

REACTIONS (11)
  - ABNORMAL BEHAVIOUR [None]
  - ACCIDENT [None]
  - AGGRESSION [None]
  - COGNITIVE DISORDER [None]
  - FALL [None]
  - HAEMATOMA [None]
  - HEAD INJURY [None]
  - MEMORY IMPAIRMENT [None]
  - MOVEMENT DISORDER [None]
  - PAIN IN EXTREMITY [None]
  - SKULL FRACTURE [None]
